FAERS Safety Report 8595300-8 (Version None)
Quarter: 2012Q3

REPORT INFORMATION
  Report Type: 
  Country: None (occurrence: None)
  Receive Date: 20120807
  Receipt Date: 20120807
  Transmission Date: 20120928
  Serious: No
  Sender: FDA-Public Use
  Company Number: None

PATIENT
  Age: 37 Year
  Sex: Female

DRUGS (1)
  1. IOPAMIDOL (ISOVUE) [Suspect]
     Indication: COMPUTERISED TOMOGRAM
     Dosage: 120ML IV ONE TIME DOSE
     Dates: start: 20120507

REACTIONS (4)
  - CONTRAST MEDIA REACTION [None]
  - FLUSHING [None]
  - PRURITUS [None]
  - THROAT IRRITATION [None]
